FAERS Safety Report 4815394-2 (Version None)
Quarter: 2005Q4

REPORT INFORMATION
  Report Type: 
  Country: None (occurrence: None)
  Receive Date: 20051027
  Receipt Date: 20051018
  Transmission Date: 20060501
  Serious: Yes (Other)
  Sender: FDA-Public Use
  Company Number: 2005097581

PATIENT
  Age: 71 Year
  Sex: Female
  Weight: 57.1532 kg

DRUGS (5)
  1. XALATAN [Suspect]
     Indication: OCULAR HYPERTENSION
     Dosage: 1 DROP IN EACH EYE (EVERY DAY), OPHTHALMIC
     Route: 047
     Dates: start: 19960701
  2. TIMOLOL MALEATE [Concomitant]
  3. LIPITOR [Concomitant]
  4. ATENOLOL [Concomitant]
  5. PRAVACHOL [Concomitant]

REACTIONS (2)
  - CATARACT OPERATION [None]
  - PHARMACEUTICAL PRODUCT COMPLAINT [None]
